FAERS Safety Report 5057187-X (Version None)
Quarter: 2006Q3

REPORT INFORMATION
  Report Type: 
  Country: None (occurrence: None)
  Receive Date: 20060721
  Receipt Date: 20050602
  Transmission Date: 20061208
  Serious: No
  Sender: FDA-Public Use
  Company Number: US-GLAXOSMITHKLINE-A0560927A

PATIENT
  Age: 54 Year
  Sex: Male

DRUGS (4)
  1. AVANDIA [Suspect]
     Indication: DRUG USE FOR UNKNOWN INDICATION
     Dosage: 4MG UNKNOWN
     Route: 048
     Dates: start: 20050530
  2. LANTEX [Concomitant]
  3. GLUCOVANCE [Concomitant]
  4. STATINS [Concomitant]

REACTIONS (1)
  - MYALGIA [None]
